FAERS Safety Report 24061291 (Version 1)
Quarter: 2024Q3

REPORT INFORMATION
  Report Type: Spontaneous
  Country: US (occurrence: US)
  Receive Date: 20240708
  Receipt Date: 20240708
  Transmission Date: 20241016
  Serious: Yes (Death, Hospitalization)
  Sender: MYLAN
  Company Number: US-MYLANLABS-2024M1061611

PATIENT
  Age: 67 Year
  Sex: Female

DRUGS (1)
  1. THIAMINE [Suspect]
     Active Substance: THIAMINE
     Indication: Wernicke^s encephalopathy
     Dosage: UNK, HIGH-DOSE
     Route: 065

REACTIONS (1)
  - Drug ineffective [Fatal]
